FAERS Safety Report 7729057-7 (Version None)
Quarter: 2011Q3

REPORT INFORMATION
  Report Type: 
  Country: None (occurrence: None)
  Receive Date: 20110831
  Receipt Date: 20110831
  Transmission Date: 20111222
  Serious: Yes (Life-Threatening, Hospitalization)
  Sender: FDA-Public Use
  Company Number: None

PATIENT
  Age: 68 Year
  Sex: Male
  Weight: 173.3 kg

DRUGS (2)
  1. WARFARIN SODIUM [Suspect]
     Dosage: 10 MG EVERY DAY PO
     Route: 048
     Dates: start: 20110611, end: 20110812
  2. ASPIRIN [Suspect]
     Dosage: 81 MG EVERY DAY PO
     Route: 048
     Dates: start: 20110611, end: 20110611

REACTIONS (1)
  - GASTRIC HAEMORRHAGE [None]
